FAERS Safety Report 4746769-8 (Version None)
Quarter: 2005Q3

REPORT INFORMATION
  Report Type: 
  Country: None (occurrence: None)
  Receive Date: 20050815
  Receipt Date: 20050729
  Transmission Date: 20060218
  Serious: Yes (Other)
  Sender: FDA-Public Use
  Company Number: 8011210

PATIENT
  Age: 8 Year
  Sex: Male

DRUGS (2)
  1. EQUASYM [Suspect]
     Indication: ATTENTION DEFICIT/HYPERACTIVITY DISORDER
     Dosage: 5 MG/ D
     Dates: start: 20050717, end: 20050701
  2. EQUASYM [Suspect]
     Indication: ATTENTION DEFICIT/HYPERACTIVITY DISORDER
     Dosage: 10 MG /D
     Dates: start: 20050701, end: 20050725

REACTIONS (3)
  - AGGRESSION [None]
  - EYE IRRITATION [None]
  - MOVEMENT DISORDER [None]
